FAERS Safety Report 13512334 (Version 1)
Quarter: 2017Q2

REPORT INFORMATION
  Report Type: Spontaneous
  Country: US (occurrence: US)
  Receive Date: 20170504
  Receipt Date: 20170504
  Transmission Date: 20170830
  Serious: Yes (Other)
  Sender: FDA-Public Use
  Company Number: US-BAYER-2017-081285

PATIENT
  Sex: Female

DRUGS (1)
  1. MIRENA [Suspect]
     Active Substance: LEVONORGESTREL
     Dosage: 20 MCG/24HR, CONT
     Route: 015

REACTIONS (15)
  - Depression suicidal [None]
  - Mental impairment [None]
  - Mood swings [None]
  - Menometrorrhagia [None]
  - Chills [None]
  - Procedural pain [Recovered/Resolved]
  - Abdominal pain [None]
  - Musculoskeletal stiffness [None]
  - Pelvic pain [None]
  - Back pain [None]
  - Joint stiffness [None]
  - Anger [None]
  - Pain in jaw [None]
  - Fatigue [None]
  - Headache [None]
